FAERS Safety Report 9274412 (Version 1)
Quarter: 2013Q2

REPORT INFORMATION
  Report Type: Spontaneous
  Country: US (occurrence: US)
  Receive Date: 20130506
  Receipt Date: 20130506
  Transmission Date: 20140414
  Serious: No
  Sender: FDA-Public Use
  Company Number: US-009507513-1305USA000818

PATIENT
  Age: 29 Year
  Sex: Female

DRUGS (4)
  1. FOLLISTIM AQ [Suspect]
     Indication: INFERTILITY
     Dosage: 900 CATRIDGE, 150 MG, ONCE DAILY
     Route: 059
     Dates: start: 20130308
  2. FOLLISTIM AQ [Suspect]
     Dosage: 900 CATRIDGE, 150 MG, ONCE DAILY
     Route: 059
     Dates: start: 201304
  3. LEVOTHYROXINE SODIUM [Concomitant]
  4. PROGESTERONE [Concomitant]

REACTIONS (1)
  - Drug ineffective [Unknown]
